FAERS Safety Report 12500469 (Version 2)
Quarter: 2016Q3

REPORT INFORMATION
  Report Type: Report from Study
  Country: AU (occurrence: AU)
  Receive Date: 20160627
  Receipt Date: 20160719
  Transmission Date: 20161109
  Serious: Yes (Hospitalization, Other)
  Sender: FDA-Public Use
  Company Number: AU-ABBVIE-16P-008-1661439-00

PATIENT
  Sex: Male

DRUGS (1)
  1. DUODOPA [Suspect]
     Active Substance: CARBIDOPA\LEVODOPA
     Indication: PARKINSON^S DISEASE
     Dosage: 24 HOUR INFUSION
     Route: 050
     Dates: start: 20140511

REACTIONS (6)
  - Drug effect delayed [Unknown]
  - Demyelination [Unknown]
  - Facial paralysis [Unknown]
  - Multiple sclerosis [Unknown]
  - Herpes zoster oticus [Unknown]
  - Stoma site discharge [Unknown]
